FAERS Safety Report 10703351 (Version 2)
Quarter: 2015Q3

REPORT INFORMATION
  Report Type: Spontaneous
  Country: US (occurrence: US)
  Receive Date: 20150112
  Receipt Date: 20150908
  Transmission Date: 20151125
  Serious: No
  Sender: FDA-Public Use
  Company Number: US-BIOGENIDEC-2015BI002791

PATIENT
  Sex: Male

DRUGS (1)
  1. AVONEX [Suspect]
     Active Substance: INTERFERON BETA-1A
     Indication: MULTIPLE SCLEROSIS
     Route: 030
     Dates: start: 19980601

REACTIONS (7)
  - Therapy cessation [Not Recovered/Not Resolved]
  - Memory impairment [Recovered/Resolved]
  - Chills [Recovered/Resolved]
  - Influenza [Recovered/Resolved]
  - Visual acuity reduced [Recovered/Resolved]
  - Feeling abnormal [Recovered/Resolved]
  - Stress [Not Recovered/Not Resolved]
